FAERS Safety Report 15764984 (Version 1)
Quarter: 2018Q4

REPORT INFORMATION
  Report Type: Spontaneous
  Country: US (occurrence: US)
  Receive Date: 20181227
  Receipt Date: 20181227
  Transmission Date: 20190205
  Serious: No
  Sender: FDA-Public Use
  Company Number: US-AMGEN-USASP2018184422

PATIENT
  Age: 66 Year
  Sex: Female

DRUGS (5)
  1. AVASTIN [Concomitant]
     Active Substance: BEVACIZUMAB
     Indication: OVARIAN CANCER METASTATIC
     Dosage: UNK UNK, EVERY 3 WEEKS
  2. CARBOPLATIN. [Concomitant]
     Active Substance: CARBOPLATIN
     Indication: OVARIAN CANCER METASTATIC
     Dosage: UNK UNK, EVERY 3 WEEKS
  3. CARBOPLATIN. [Concomitant]
     Active Substance: CARBOPLATIN
     Indication: ENDOMETRIAL CANCER METASTATIC
  4. NEULASTA [Suspect]
     Active Substance: PEGFILGRASTIM
     Indication: PRODUCT USED FOR UNKNOWN INDICATION
     Dosage: UNK
     Route: 065
  5. AVASTIN [Concomitant]
     Active Substance: BEVACIZUMAB
     Indication: ENDOMETRIAL CANCER METASTATIC

REACTIONS (3)
  - Nausea [Unknown]
  - Bone pain [Not Recovered/Not Resolved]
  - Arthralgia [Not Recovered/Not Resolved]

NARRATIVE: CASE EVENT DATE: 2018
